FAERS Safety Report 6564894-6 (Version None)
Quarter: 2010Q1

REPORT INFORMATION
  Report Type: 
  Country: None (occurrence: None)
  Receive Date: 20100201
  Receipt Date: 20100120
  Transmission Date: 20100710
  Serious: Yes (Hospitalization)
  Sender: FDA-Public Use
  Company Number: KR-ELI_LILLY_AND_COMPANY-KR201001000267

PATIENT
  Sex: Female

DRUGS (25)
  1. GEMCITABINE HCL [Suspect]
     Indication: BREAST CANCER
     Dosage: 1250 MG/M2, UNK
     Route: 065
     Dates: start: 20091016, end: 20091221
  2. PACLITAXEL [Suspect]
     Indication: BREAST CANCER
     Dosage: 175 MG/M2, UNK
     Dates: start: 20091016
  3. CODEINE SUL TAB [Concomitant]
     Dosage: 20 MG, UNK
     Dates: start: 20091009
  4. ULTRACET [Concomitant]
     Dates: start: 20091112
  5. BROMHEXINE [Concomitant]
     Dosage: 8 MG, UNK
     Dates: start: 20091010
  6. DARBEPOETIN ALFA [Concomitant]
     Dosage: 50 UG, UNK
     Dates: start: 20091130, end: 20091130
  7. CALCIUM CARBONATE W/VITAMIN D NOS [Concomitant]
     Dates: start: 20091021
  8. DEXAMETHASONE [Concomitant]
     Dosage: 5 MG, UNK
     Dates: start: 20091016
  9. GASTER [Concomitant]
     Dosage: 20 MG, UNK
     Dates: start: 20091016
  10. FAMOTIDINE [Concomitant]
     Dosage: 20 MG, UNK
     Dates: start: 20091023
  11. COUGH SYRUP [Concomitant]
     Dates: start: 20091010
  12. MEGESTROL ACETATE [Concomitant]
     Dosage: 10 ML, UNK
     Dates: start: 20091230
  13. FEROBA [Concomitant]
     Dates: start: 20091130, end: 20091221
  14. HEXOMEDIN [Concomitant]
     Dosage: 100 ML, UNK
     Dates: start: 20091029
  15. MAGMIL [Concomitant]
     Dosage: UNK, UNK
     Dates: start: 20091020, end: 20091024
  16. MOXICLAV [Concomitant]
     Dosage: 375 MG, UNK
     Dates: start: 20091014, end: 20091028
  17. MACPERAN [Concomitant]
     Dosage: 5 MG, UNK
     Dates: start: 20091029
  18. MACPERAN [Concomitant]
     Dosage: 10 MG, UNK
     Dates: start: 20091019, end: 20091019
  19. MACPERAN [Concomitant]
     Dosage: 10 MG, UNK
     Dates: start: 20091029, end: 20091029
  20. TRANSAMIN [Concomitant]
     Dosage: 250 MG, UNK
     Dates: start: 20091010, end: 20091013
  21. ONDANSETRON [Concomitant]
     Dosage: 8 MG, UNK
     Dates: start: 20091016
  22. ZOMETA [Concomitant]
     Dosage: 4 MG, UNK
     Dates: start: 20091016
  23. CHLORPHENIRAMINE MALEATE [Concomitant]
     Dosage: 4 MG, UNK
     Dates: start: 20091008
  24. ZOVIRAX /00587301/ [Concomitant]
     Dosage: 200 MG, UNK
     Dates: start: 20091014, end: 20091019
  25. PROSPAN [Concomitant]
     Dates: start: 20091011, end: 20091021

REACTIONS (1)
  - PNEUMONIA [None]
